FAERS Safety Report 5374813-6 (Version None)
Quarter: 2007Q2

REPORT INFORMATION
  Report Type: 
  Country: None (occurrence: None)
  Receive Date: 20070629
  Receipt Date: 20070627
  Transmission Date: 20071010
  Serious: Yes (Other)
  Sender: FDA-Public Use
  Company Number: A0660322A

PATIENT
  Age: 25 Year
  Sex: Female

DRUGS (3)
  1. LAMICTAL [Suspect]
     Indication: POSTPARTUM DEPRESSION
     Dosage: 25MG PER DAY
     Route: 048
     Dates: start: 20040101
  2. PROZAC [Concomitant]
  3. BIRTH CONTROL [Concomitant]

REACTIONS (4)
  - ARRHYTHMIA [None]
  - PRURITUS [None]
  - RASH [None]
  - SYNCOPE [None]
